FAERS Safety Report 13361123 (Version 1)
Quarter: 2017Q1

REPORT INFORMATION
  Report Type: Spontaneous
  Country: CN (occurrence: CN)
  Receive Date: 20170322
  Receipt Date: 20170322
  Transmission Date: 20170429
  Serious: Yes (Hospitalization)
  Sender: FDA-Public Use
  Company Number: CN-AMGEN-CHNSP2017044350

PATIENT
  Age: 65 Year
  Sex: Female

DRUGS (3)
  1. G-LASTA [Suspect]
     Active Substance: PEGFILGRASTIM
     Indication: BONE MARROW FAILURE
     Dosage: 200 MUG, BID
     Route: 058
     Dates: start: 20160704, end: 20160705
  2. GRAN [Suspect]
     Active Substance: FILGRASTIM
     Dosage: 200 MUG, BID
     Route: 058
     Dates: start: 20160705, end: 20160708
  3. GRAN [Suspect]
     Active Substance: FILGRASTIM
     Indication: BONE MARROW FAILURE
     Dosage: 300 MUG, QD
     Route: 058
     Dates: start: 20160704, end: 20160705

REACTIONS (1)
  - Leukaemoid reaction [Recovering/Resolving]

NARRATIVE: CASE EVENT DATE: 20160716
